FAERS Safety Report 23213989 (Version 1)
Quarter: 2023Q4

REPORT INFORMATION
  Report Type: Spontaneous
  Country: PT (occurrence: PT)
  Receive Date: 20231121
  Receipt Date: 20231121
  Transmission Date: 20240109
  Serious: Yes (Hospitalization)
  Sender: FDA-Public Use
  Company Number: PT-AMGEN-PRTSP2023205777

PATIENT
  Age: 62 Year
  Sex: Male

DRUGS (2)
  1. BEVACIZUMAB [Suspect]
     Active Substance: BEVACIZUMAB
     Indication: Retinal vein occlusion
     Dosage: UNK
  2. BEVACIZUMAB [Suspect]
     Active Substance: BEVACIZUMAB
     Indication: Retinal artery occlusion

REACTIONS (5)
  - Ciliary hyperaemia [Unknown]
  - Keratic precipitates [Unknown]
  - Anterior chamber cell [Unknown]
  - Iris adhesions [Unknown]
  - Off label use [Unknown]
